FAERS Safety Report 5410805-6 (Version None)
Quarter: 2007Q3

REPORT INFORMATION
  Report Type: 
  Country: None (occurrence: None)
  Receive Date: 20070810
  Receipt Date: 20070802
  Transmission Date: 20080115
  Serious: Yes (Other)
  Sender: FDA-Public Use
  Company Number: PHBS2007BR13005

PATIENT
  Age: 7 Year
  Sex: Female
  Weight: 22 kg

DRUGS (3)
  1. PURAN T4 [Concomitant]
     Indication: HYPOTHYROIDISM
     Dosage: 25 MG/DAY
     Route: 048
  2. HUMAN GROWTH HORMONE, RECOMBINANT [Concomitant]
     Indication: TURNER'S SYNDROME
     Dosage: 0.7 ML, UNK
     Route: 058
  3. RITALIN LA [Suspect]
     Indication: ATTENTION DEFICIT/HYPERACTIVITY DISORDER
     Dosage: 20 MG/DAY
     Route: 048

REACTIONS (2)
  - AGITATION [None]
  - IRRITABILITY [None]
